FAERS Safety Report 8757858 (Version 3)
Quarter: 2013Q1

REPORT INFORMATION
  Report Type: Report from Study
  Country: JP (occurrence: JP)
  Receive Date: 20120828
  Receipt Date: 20130207
  Transmission Date: 20140127
  Serious: Yes (Other)
  Sender: FDA-Public Use
  Company Number: JP-VERTEX PHARMACEUTICAL INC.-2012-019984

PATIENT
  Age: 59 Year
  Sex: Male

DRUGS (13)
  1. VX-950 (TELAPREVIR) [Suspect]
     Indication: CHRONIC HEPATITIS C
     Dosage: 2250 MG, QD
     Route: 048
     Dates: start: 20120508, end: 20120625
  2. VX-950 (TELAPREVIR) [Suspect]
     Dosage: 1500 MG, QD
     Route: 048
     Dates: start: 20120626, end: 20120730
  3. RIBAVIRIN [Suspect]
     Indication: CHRONIC HEPATITIS C
     Dosage: 800 MG, QD
     Route: 048
     Dates: start: 20120508, end: 20120611
  4. RIBAVIRIN [Suspect]
     Dosage: 600 MG, QD
     Route: 048
     Dates: start: 20120612, end: 20120813
  5. RIBAVIRIN [Suspect]
     Dosage: 800 MG, QD
     Route: 048
     Dates: start: 20120814, end: 20121022
  6. PEGINTERFERON ALFA-2B [Suspect]
     Indication: CHRONIC HEPATITIS C
     Dosage: 1.5 ?G/KG, QW (120 MCG/BODY/WEEK)
     Route: 058
     Dates: start: 20120508, end: 20120605
  7. PEGINTERFERON ALFA-2B [Suspect]
     Dosage: 110 ?G/BODY/WEEK
     Route: 058
     Dates: start: 20120612, end: 20120731
  8. PEGINTERFERON ALFA-2B [Suspect]
     Dosage: 90 ?G/BODY/WEEK
     Route: 058
     Dates: start: 20120807, end: 20120821
  9. PEGINTERFERON ALFA-2B [Suspect]
     Dosage: 100 ?G/BODY/WEEK
     Route: 058
     Dates: start: 20120828, end: 20121016
  10. GLYCYRON [Concomitant]
     Dosage: 6 DF, QD
     Route: 048
  11. AMLODIPINE [Concomitant]
     Dosage: 5 MG, QD
     Route: 048
  12. SELBEX [Concomitant]
     Dosage: 50 MG, QD
     Route: 048
     Dates: start: 20120508, end: 20120509
  13. URDENACIN [Concomitant]
     Dosage: 600 MG, QD
     Route: 048

REACTIONS (1)
  - Retinopathy [Recovered/Resolved]
